FAERS Safety Report 14963430 (Version 1)
Quarter: 2018Q2

REPORT INFORMATION
  Report Type: Spontaneous
  Country: JP (occurrence: JP)
  Receive Date: 20180601
  Receipt Date: 20180601
  Transmission Date: 20180711
  Serious: Yes (Hospitalization)
  Sender: FDA-Public Use
  Company Number: JP-PFIZER INC-2018217291

PATIENT
  Age: 8 Decade
  Sex: Male

DRUGS (2)
  1. SUNITINIB MALATE. [Suspect]
     Active Substance: SUNITINIB MALATE
     Indication: RENAL CELL CARCINOMA
     Dosage: 37.5 MG, (2-WEEKS-ON AND 1-WEEK-OFF)
  2. SUNITINIB MALATE. [Suspect]
     Active Substance: SUNITINIB MALATE
     Dosage: 25 MG, UNK

REACTIONS (7)
  - Tumour lysis syndrome [Recovering/Resolving]
  - Cardiac failure congestive [Recovering/Resolving]
  - Left ventricular dysfunction [Not Recovered/Not Resolved]
  - Disseminated intravascular coagulation [Recovering/Resolving]
  - Hepatitis fulminant [Recovering/Resolving]
  - Renal impairment [Recovering/Resolving]
  - Sepsis [Recovering/Resolving]
